FAERS Safety Report 5900064-X (Version None)
Quarter: 2008Q3

REPORT INFORMATION
  Report Type: 
  Country: None (occurrence: None)
  Receive Date: 20080926
  Receipt Date: 20080917
  Transmission Date: 20090109
  Serious: Yes (Hospitalization)
  Sender: FDA-Public Use
  Company Number: FI-JNJFOC-20080904118

PATIENT
  Age: 44 Year
  Sex: Male

DRUGS (2)
  1. REMICADE [Suspect]
     Indication: DERMATITIS EXFOLIATIVE
     Route: 042
  2. REMICADE [Suspect]
     Indication: PSORIASIS
     Dosage: INFUSION 1-10 ON UNSPECIFIED DATES
     Route: 042

REACTIONS (2)
  - ALCOHOL USE [None]
  - ECZEMA [None]
